FAERS Safety Report 6013768-8 (Version None)
Quarter: 2008Q4

REPORT INFORMATION
  Report Type: 
  Country: None (occurrence: None)
  Receive Date: 20081219
  Receipt Date: 20081217
  Transmission Date: 20090506
  Serious: Yes (Hospitalization)
  Sender: FDA-Public Use
  Company Number: B0551070A

PATIENT
  Age: 43 Year
  Sex: Female

DRUGS (2)
  1. TYVERB [Suspect]
     Indication: BREAST NEOPLASM
  2. XELODA [Concomitant]
     Dosage: 2000MG PER DAY
     Route: 048
     Dates: start: 20080101, end: 20081001

REACTIONS (4)
  - ABDOMINAL PAIN [None]
  - CHOLANGITIS ACUTE [None]
  - JAUNDICE [None]
  - MUSCLE SPASMS [None]
